FAERS Safety Report 5727070-2 (Version None)
Quarter: 2008Q2

REPORT INFORMATION
  Report Type: 
  Country: None (occurrence: None)
  Receive Date: 20080505
  Receipt Date: 20080425
  Transmission Date: 20081010
  Serious: Yes (Life-Threatening, Other)
  Sender: FDA-Public Use
  Company Number: US-ELI_LILLY_AND_COMPANY-US200802005796

PATIENT
  Sex: Male
  Weight: 153.74 kg

DRUGS (6)
  1. ZYPREXA [Suspect]
     Indication: ANXIETY
     Dosage: 5 MG, 3/D
     Dates: start: 20070606, end: 20080101
  2. ZOLOFT [Concomitant]
     Indication: ANGER
     Dosage: 100 MG, DAILY (1/D)
     Dates: start: 20070601
  3. ZOLOFT [Concomitant]
     Dosage: 150 MG, DAILY (1/D)
  4. BUSPAR [Concomitant]
     Indication: ANXIETY
     Dosage: 7.5 MG, 2/D
     Dates: start: 20070601
  5. BUSPAR [Concomitant]
     Dosage: 10 MG, 2/D
  6. LAMICTAL [Concomitant]
     Indication: AFFECTIVE DISORDER
     Dosage: 100 MG, DAILY (1/D)
     Dates: start: 20080101

REACTIONS (9)
  - ALANINE AMINOTRANSFERASE INCREASED [None]
  - ASPARTATE AMINOTRANSFERASE INCREASED [None]
  - BLOOD ALKALINE PHOSPHATASE INCREASED [None]
  - HYPERLIPIDAEMIA [None]
  - HYPERTENSION [None]
  - INCREASED APPETITE [None]
  - OBESITY [None]
  - TYPE 2 DIABETES MELLITUS [None]
  - WEIGHT INCREASED [None]
